FAERS Safety Report 5960969-0 (Version None)
Quarter: 2008Q4

REPORT INFORMATION
  Report Type: 
  Country: None (occurrence: None)
  Receive Date: 20081121
  Receipt Date: 20081118
  Transmission Date: 20090506
  Serious: Yes (Hospitalization)
  Sender: FDA-Public Use
  Company Number: US-BRISTOL-MYERS SQUIBB COMPANY-14410278

PATIENT
  Age: 52 Year
  Sex: Female
  Weight: 57 kg

DRUGS (9)
  1. ABILIFY [Suspect]
     Indication: PSYCHOTIC DISORDER
     Dates: start: 20081030
  2. ABILIFY [Suspect]
     Indication: ABNORMAL BEHAVIOUR
     Dates: start: 20081030
  3. ABILIFY [Suspect]
     Indication: INSOMNIA
     Dates: start: 20081030
  4. LEXAPRO [Concomitant]
     Dosage: DOSAGE REDUCED LATER
     Dates: start: 20080301
  5. CYMBALTA [Concomitant]
     Dosage: STARTED A WEEK AGO.
  6. HYDROXYZINE [Concomitant]
     Dosage: TAKEN 1-2 DAILY AT BEDTIME FOR 6 YEARS.
  7. XANAX [Concomitant]
     Dosage: TAKEN 1MG, 1/2-1 TAB.
     Dates: start: 20080301
  8. AMBIEN [Concomitant]
     Dosage: TAKEN 1-2 TAB AT BEDTIME FOR 1-2 MONTHS AND DISCONTINUED.
  9. NORCO [Concomitant]
     Dosage: 1 DOSAGEFORM = 5MG/325MG TAB

REACTIONS (1)
  - BIPOLAR I DISORDER [None]
